FAERS Safety Report 6149495-6 (Version None)
Quarter: 2009Q2

REPORT INFORMATION
  Report Type: 
  Country: None (occurrence: None)
  Receive Date: 20090409
  Receipt Date: 20090331
  Transmission Date: 20091009
  Serious: Yes (Hospitalization)
  Sender: FDA-Public Use
  Company Number: US-ROCHE-622512

PATIENT
  Sex: Male
  Weight: 84.8 kg

DRUGS (6)
  1. CAPECITABINE [Suspect]
     Dosage: FORM: PILL, FREQUENCY: EVERY 21 DAYS FOR 15 DAYS, LAST DOSE PRIOR TO SAE: 09 MARCH 2009.
     Route: 048
     Dates: start: 20071217
  2. BEVACIZUMAB [Suspect]
     Dosage: FREQUENCY: EVERY 21 DAYS OVER 30 MIN. FORM: INFUSION, LAST DOSE PRIOR TO SAE: 23 FEBRUARY 2009.
     Route: 042
     Dates: start: 20071217
  3. OXALIPLATIN [Suspect]
     Dosage: FORM: INFUSION, DOSE: 70 OR 135 MG/M2, FREQUENCY: EVERY 21 DAYS OVER TWO HOURS.
     Route: 042
     Dates: start: 20071217, end: 20080317
  4. ATENOLOL [Concomitant]
     Dates: start: 20070101
  5. ZOCOR [Concomitant]
  6. ASPIRIN [Concomitant]
     Route: 048
     Dates: start: 20070101

REACTIONS (2)
  - DEHYDRATION [None]
  - PANCREATITIS ACUTE [None]
